FAERS Safety Report 20603169 (Version 1)
Quarter: 2022Q1

REPORT INFORMATION
  Report Type: Report from Study
  Country: BR (occurrence: BR)
  Receive Date: 20220316
  Receipt Date: 20220316
  Transmission Date: 20220424
  Serious: Yes (Hospitalization)
  Sender: FDA-Public Use
  Company Number: BR-NOVARTISPH-NVSC2022BR049392

PATIENT
  Age: 87 Year
  Sex: Male

DRUGS (8)
  1. XOLAIR [Suspect]
     Active Substance: OMALIZUMAB
     Indication: Emphysema
     Dosage: UNK UNK, BIW
     Route: 030
     Dates: start: 202006
  2. GLYCOPYRRONIUM\INDACATEROL [Suspect]
     Active Substance: GLYCOPYRRONIUM\INDACATEROL
     Indication: Lung disorder
     Dosage: 110 MG+50 MG (STARTED 4 YEARS AGO)
     Route: 055
  3. GLYCOPYRRONIUM\INDACATEROL [Suspect]
     Active Substance: GLYCOPYRRONIUM\INDACATEROL
     Indication: Hypersensitivity
  4. OXIMAR [Concomitant]
     Indication: Lung disorder
     Dosage: 400 MG, TID (STARTED 4 YEARS AGO)
     Route: 055
  5. OXIMAR [Concomitant]
     Indication: Hypersensitivity
  6. ACETYLCYSTEINE [Concomitant]
     Active Substance: ACETYLCYSTEINE
     Indication: Lung disorder
     Dosage: 600 MG IN 5G (STARTED 4 YEARS AGO)
     Route: 048
  7. MONTELUKAST SODIUM [Concomitant]
     Active Substance: MONTELUKAST SODIUM
     Indication: Lung disorder
     Dosage: 40 MG, QD (STARTED 4 YEARS AGO)
     Route: 048
  8. CHLORAMPHENICOL\PREDNISOLONE [Concomitant]
     Active Substance: CHLORAMPHENICOL\PREDNISOLONE
     Indication: Lung disorder
     Dosage: 5 MG, QD (STARTED 4 YEARS AGO)
     Route: 048

REACTIONS (8)
  - Illness [Not Recovered/Not Resolved]
  - Dyspnoea [Not Recovered/Not Resolved]
  - Bacterial infection [Recovering/Resolving]
  - Swelling [Recovering/Resolving]
  - Fatigue [Not Recovered/Not Resolved]
  - Asthenia [Not Recovered/Not Resolved]
  - Blood albumin decreased [Not Recovered/Not Resolved]
  - Product use in unapproved indication [Unknown]

NARRATIVE: CASE EVENT DATE: 20220201
